FAERS Safety Report 5836625-6 (Version None)
Quarter: 2008Q3

REPORT INFORMATION
  Report Type: 
  Country: None (occurrence: None)
  Receive Date: 20080807
  Receipt Date: 20080729
  Transmission Date: 20090109
  Serious: Yes (Hospitalization)
  Sender: FDA-Public Use
  Company Number: IT-ELI_LILLY_AND_COMPANY-IT200807002849

PATIENT
  Age: 83 Year
  Sex: Female

DRUGS (7)
  1. FORTEO [Suspect]
     Indication: OSTEOPOROTIC FRACTURE
     Dosage: 20 UG, DAILY (1/D)
     Route: 058
     Dates: start: 20080628, end: 20080713
  2. TRENTAL [Concomitant]
     Dosage: 800 MG, DAILY (1/D)
     Route: 048
  3. LYRICA [Concomitant]
     Dosage: 150 MG, DAILY (1/D)
     Route: 048
  4. ACIRIL [Concomitant]
     Dosage: 1 D/F, DAILY (1/D)
     Route: 048
  5. TRAMADOL HCL [Concomitant]
     Dosage: 20 D/F, 2/D
     Route: 048
  6. GLIBOMET [Concomitant]
     Dosage: 1 D/F, 2/D
     Route: 048
  7. ATENOLOL [Concomitant]
     Dosage: 100 MG, DAILY (1/D)
     Route: 048

REACTIONS (1)
  - HAEMANGIOMA [None]
